FAERS Safety Report 8340250-5 (Version None)
Quarter: 2012Q2

REPORT INFORMATION
  Report Type: 
  Country: None (occurrence: None)
  Receive Date: 20120507
  Receipt Date: 20120425
  Transmission Date: 20120825
  Serious: Yes (Hospitalization, Other)
  Sender: FDA-Public Use
  Company Number: PHHY2012FR036351

PATIENT
  Sex: Female

DRUGS (4)
  1. EXJADE [Suspect]
     Dosage: 500 MG, DAILY
     Route: 048
     Dates: start: 20110801, end: 20120327
  2. FOLIC ACID [Concomitant]
     Dosage: UNK UKN, UNK
     Dates: start: 20060101
  3. PHENOXYMETHYL PENICILLIN [Concomitant]
     Indication: PROPHYLAXIS
     Dosage: 50000 IU, UNK
     Dates: start: 20060101, end: 20120327
  4. EXJADE [Suspect]
     Indication: IRON OVERLOAD
     Dosage: 25 MG/KG, QD
     Route: 048
     Dates: start: 20110126

REACTIONS (6)
  - PROTHROMBIN LEVEL DECREASED [None]
  - OVERDOSE [None]
  - PROTHROMBIN TIME RATIO DECREASED [None]
  - HEPATOMEGALY [None]
  - VOMITING [None]
  - COAGULATION FACTOR V LEVEL DECREASED [None]
